FAERS Safety Report 11863814 (Version 1)
Quarter: 2015Q4

REPORT INFORMATION
  Report Type: Spontaneous
  Country: US (occurrence: US)
  Receive Date: 20151223
  Receipt Date: 20151223
  Transmission Date: 20160305
  Serious: Yes (Hospitalization, Other)
  Sender: FDA-Public Use
  Company Number: US-DSJP-DSU-2015-129546

PATIENT

DRUGS (3)
  1. BENICAR [Suspect]
     Active Substance: OLMESARTAN MEDOXOMIL
     Indication: HYPERTENSION
     Dosage: 20 MG, QD
     Dates: start: 20121010, end: 20140212
  2. BENICAR HCT [Suspect]
     Active Substance: HYDROCHLOROTHIAZIDE\OLMESARTAN MEDOXOMIL
     Indication: HYPERTENSION
     Dosage: 40MG/12.5MG,QD
     Dates: start: 2012, end: 20140212
  3. BENICAR [Suspect]
     Active Substance: OLMESARTAN MEDOXOMIL
     Dosage: 40 UNK, QD
     Dates: start: 20140212

REACTIONS (15)
  - Faecaloma [Unknown]
  - Anxiety [Unknown]
  - Depression [Unknown]
  - Lipoma [Unknown]
  - Dyspepsia [Unknown]
  - Diverticulitis [Unknown]
  - Malabsorption [Not Recovered/Not Resolved]
  - Haematemesis [Unknown]
  - Oesophagitis [Unknown]
  - Gastroenteritis [Unknown]
  - Hepatic steatosis [Unknown]
  - Biliary dyskinesia [Unknown]
  - Irritable bowel syndrome [Unknown]
  - Melaena [Unknown]
  - Hiatus hernia [Unknown]

NARRATIVE: CASE EVENT DATE: 2011
